FAERS Safety Report 4344198-2 (Version None)
Quarter: 2004Q2

REPORT INFORMATION
  Report Type: 
  Country: None (occurrence: None)
  Receive Date: 20040419
  Receipt Date: 20040405
  Transmission Date: 20050107
  Serious: Yes (Hospitalization)
  Sender: FDA-Public Use
  Company Number: 2004023359

PATIENT
  Age: 70 Year
  Sex: Male

DRUGS (2)
  1. PHENYTOIN [Suspect]
     Indication: EPILEPSY
     Dosage: 300 MG (DAILY), ORAL
     Route: 048
     Dates: start: 19890101
  2. DROGENIL (FLUTAMIDE) [Suspect]
     Indication: PROSTATE CANCER
     Dosage: 750 MG (DAILY), ORAL
     Route: 048
     Dates: start: 19920630

REACTIONS (7)
  - BLOOD CREATININE INCREASED [None]
  - CONVULSION [None]
  - DRUG INTERACTION [None]
  - LOSS OF CONSCIOUSNESS [None]
  - PLATELET COUNT INCREASED [None]
  - PROSTATE CANCER [None]
  - WHITE BLOOD CELL COUNT INCREASED [None]
